FAERS Safety Report 17651645 (Version 1)
Quarter: 2020Q2

REPORT INFORMATION
  Report Type: Spontaneous
  Country: US (occurrence: US)
  Receive Date: 20200409
  Receipt Date: 20200409
  Transmission Date: 20200713
  Serious: No
  Sender: FDA-Public Use
  Company Number: None

PATIENT
  Age: 63 Year
  Sex: Male

DRUGS (1)
  1. ANASTROZOLE TAB 1MG [Suspect]
     Active Substance: ANASTROZOLE
     Dosage: ?          OTHER FREQUENCY:UNKNOWN;?
     Route: 048
     Dates: start: 20200409

REACTIONS (1)
  - Off label use [None]

NARRATIVE: CASE EVENT DATE: 20200409
